FAERS Safety Report 6031582-4 (Version None)
Quarter: 2008Q4

REPORT INFORMATION
  Report Type: 
  Country: None (occurrence: None)
  Receive Date: 20081229
  Receipt Date: 20080117
  Transmission Date: 20090506
  Serious: Yes (Other)
  Sender: FDA-Public Use
  Company Number: 165483USA

PATIENT
  Age: 38 Year
  Sex: Female
  Weight: 58.9676 kg

DRUGS (2)
  1. CLOZAPINE [Suspect]
     Indication: SCHIZOPHRENIA
     Dosage: (450 MG),ORAL
     Route: 048
     Dates: start: 20051001
  2. ARIPIPRAZOLE [Concomitant]

REACTIONS (1)
  - GRANULOCYTOPENIA [None]
